FAERS Safety Report 5807567-7 (Version None)
Quarter: 2008Q3

REPORT INFORMATION
  Report Type: 
  Country: None (occurrence: None)
  Receive Date: 20080709
  Receipt Date: 20080709
  Transmission Date: 20090109
  Serious: Yes (Hospitalization)
  Sender: FDA-Public Use
  Company Number: None

PATIENT
  Age: 63 Year
  Sex: Male

DRUGS (2)
  1. NAFCILLIN SODIUM [Suspect]
     Indication: INFECTION
     Dosage: 2 GM OTHER IV
     Route: 042
     Dates: start: 20080301, end: 20080312
  2. GENTAMICIN [Suspect]
     Indication: INFECTION
     Dosage: 160 MG BID IV
     Route: 042
     Dates: start: 20080301, end: 20080312

REACTIONS (1)
  - RENAL FAILURE ACUTE [None]
